FAERS Safety Report 21566858 (Version 1)
Quarter: 2022Q4

REPORT INFORMATION
  Report Type: Spontaneous
  Country: US (occurrence: None)
  Receive Date: 20221107
  Receipt Date: 20221107
  Transmission Date: 20230112
  Serious: Yes (Other)
  Sender: FDA-Public Use
  Company Number: None

PATIENT
  Age: 66 Year
  Sex: Female
  Weight: 78.75 kg

DRUGS (24)
  1. DENOSUMAB [Suspect]
     Active Substance: DENOSUMAB
     Indication: Osteoporosis
     Dosage: OTHER FREQUENCY : EVERY 6 MONTHS;?OTHER ROUTE : INJECTION IN ARM;?
     Route: 050
     Dates: start: 20211209, end: 20220609
  2. DEVICE [Concomitant]
     Active Substance: DEVICE
  3. AMOXICILLIN [Concomitant]
     Active Substance: AMOXICILLIN
  4. CHLORHEXIDINE GLUCONATE [Concomitant]
     Active Substance: CHLORHEXIDINE GLUCONATE
  5. AMITRIPTYLINE [Concomitant]
     Active Substance: AMITRIPTYLINE
  6. LEVOTHYROXINE [Concomitant]
     Active Substance: LEVOTHYROXINE
  7. LIOTHYRONINE [Concomitant]
     Active Substance: LIOTHYRONINE
  8. Celeoxib [Concomitant]
  9. ESZOPICLONE [Concomitant]
     Active Substance: ESZOPICLONE
  10. FLUTICASONE PROPIONATE [Concomitant]
     Active Substance: FLUTICASONE PROPIONATE
  11. SALMETEROL [Concomitant]
     Active Substance: SALMETEROL
  12. Methyl Pro L-methyl folate Ca [Concomitant]
  13. Methyl B-12 [Concomitant]
  14. VITAMINS [Concomitant]
     Active Substance: VITAMINS
  15. VITAMIN C [Concomitant]
     Active Substance: ASCORBIC ACID
  16. CALCIUM [Concomitant]
     Active Substance: CALCIUM
  17. MAGNESIUM [Concomitant]
     Active Substance: MAGNESIUM
  18. ZINC [Concomitant]
     Active Substance: ZINC
  19. POTASSIUM [Concomitant]
     Active Substance: POTASSIUM
  20. VITAMIN D3 [Concomitant]
     Active Substance: CHOLECALCIFEROL
  21. FLAXSEED [Concomitant]
     Active Substance: FLAX SEED
  22. PROBIOTICS NOS [Concomitant]
     Active Substance: PROBIOTICS NOS
  23. COENZYME Q10 [Concomitant]
     Active Substance: DIETARY SUPPLEMENT\UBIDECARENONE
  24. Stool softner docusate sodium [Concomitant]

REACTIONS (2)
  - Migraine [None]
  - Osteonecrosis of jaw [None]

NARRATIVE: CASE EVENT DATE: 20220813
